FAERS Safety Report 9665866 (Version 2)
Quarter: 2013Q4

REPORT INFORMATION
  Report Type: Spontaneous
  Country: CZ (occurrence: CZ)
  Receive Date: 20131104
  Receipt Date: 20131219
  Transmission Date: 20140711
  Serious: Yes (Other)
  Sender: FDA-Public Use
  Company Number: PHHY2013CZ120099

PATIENT
  Sex: Female

DRUGS (1)
  1. CURAM [Suspect]
     Indication: BORRELIA INFECTION
     Dosage: 625 MG, Q8H

REACTIONS (4)
  - Gastrointestinal pain [Unknown]
  - Pharyngeal oedema [Recovered/Resolved]
  - Dyspnoea [Recovered/Resolved]
  - Nausea [Unknown]
